FAERS Safety Report 21371523 (Version 1)
Quarter: 2022Q3

REPORT INFORMATION
  Report Type: Spontaneous
  Country: GB (occurrence: GB)
  Receive Date: 20220923
  Receipt Date: 20220923
  Transmission Date: 20221027
  Serious: Yes (Hospitalization, Other)
  Sender: FDA-Public Use
  Company Number: None

PATIENT
  Age: 58 Year
  Sex: Male
  Weight: 62 kg

DRUGS (1)
  1. EMPAGLIFLOZIN [Suspect]
     Active Substance: EMPAGLIFLOZIN
     Indication: Diabetes mellitus
     Route: 048
     Dates: start: 20190722, end: 20220522

REACTIONS (1)
  - Fournier^s gangrene [Not Recovered/Not Resolved]

NARRATIVE: CASE EVENT DATE: 20220815
